FAERS Safety Report 7211500-3 (Version None)
Quarter: 2011Q1

REPORT INFORMATION
  Report Type: 
  Country: None (occurrence: None)
  Receive Date: 20110105
  Receipt Date: 20101231
  Transmission Date: 20110831
  Serious: Yes (Death)
  Sender: FDA-Public Use
  Company Number: US-PFIZER INC-2011001870

PATIENT
  Age: 21 Year
  Sex: Male

DRUGS (3)
  1. VERAPAMIL HCL [Suspect]
  2. GEMFIBROZIL [Suspect]
  3. ETHANOL [Suspect]

REACTIONS (2)
  - COMPLETED SUICIDE [None]
  - INTENTIONAL DRUG MISUSE [None]
